FAERS Safety Report 17816738 (Version 2)
Quarter: 2020Q2

REPORT INFORMATION
  Report Type: Spontaneous
  Country: US (occurrence: US)
  Receive Date: 20200522
  Receipt Date: 20200526
  Transmission Date: 20200714
  Serious: Yes (Life-Threatening, Other)
  Sender: FDA-Public Use
  Company Number: US-PFIZER INC-2020202984

PATIENT

DRUGS (1)
  1. BUPIVACAINE HCL [Suspect]
     Active Substance: BUPIVACAINE HYDROCHLORIDE
     Indication: JOINT SURGERY
     Dosage: BUPIVACAINE HCL:0.75% IN DEXTROSE: 8.25% PER 2ML STRENGTH: 2ML SPINAL INFUSION AT UNKNOWN RATE
     Dates: start: 20200519, end: 20200519

REACTIONS (1)
  - Drug ineffective [Recovered/Resolved]

NARRATIVE: CASE EVENT DATE: 20200519
